FAERS Safety Report 5356532-5 (Version None)
Quarter: 2007Q2

REPORT INFORMATION
  Report Type: 
  Country: None (occurrence: None)
  Receive Date: 20070530
  Receipt Date: 20061116
  Transmission Date: 20071010
  Serious: Yes (Hospitalization)
  Sender: FDA-Public Use
  Company Number: US200608006561

PATIENT
  Age: 43 Year
  Sex: Male
  Weight: 112 kg

DRUGS (6)
  1. ZYPREXA [Suspect]
     Dosage: SEE IMAGE
     Dates: end: 20040403
  2. ZYPREXA [Suspect]
     Dosage: SEE IMAGE
     Dates: start: 20010502
  3. QUETIAPINE FUMARATE [Concomitant]
  4. CHLORPROMAZINE [Concomitant]
  5. DIVALPROEX SOIDUM                                    (VALPROATE SEMISO [Concomitant]
  6. DOXEPIN HCL [Concomitant]

REACTIONS (2)
  - DIABETES MELLITUS NON-INSULIN-DEPENDENT [None]
  - HYPERTENSION [None]
